FAERS Safety Report 10970782 (Version 2)
Quarter: 2015Q2

REPORT INFORMATION
  Report Type: Spontaneous
  Country: US (occurrence: US)
  Receive Date: 20150331
  Receipt Date: 20150408
  Transmission Date: 20150821
  Serious: Yes (Hospitalization, Other)
  Sender: FDA-Public Use
  Company Number: CHPA2015US004243

PATIENT
  Age: 76 Year
  Sex: Male

DRUGS (1)
  1. VOLTAREN [Suspect]
     Active Substance: DICLOFENAC SODIUM
     Indication: BACK PAIN
     Dosage: NOT MUCH, PRN
     Route: 061

REACTIONS (9)
  - Gastric ulcer perforation [Recovered/Resolved]
  - Drug administered at inappropriate site [Unknown]
  - Clostridium difficile infection [Recovered/Resolved]
  - Product use issue [Unknown]
  - Feeling abnormal [Recovered/Resolved]
  - Gastric haemorrhage [Recovered/Resolved]
  - Memory impairment [Recovered/Resolved]
  - Wrong technique in drug usage process [Unknown]
  - Therapeutic response unexpected [Unknown]

NARRATIVE: CASE EVENT DATE: 201502
